FAERS Safety Report 6236642-0 (Version None)
Quarter: 2009Q2

REPORT INFORMATION
  Report Type: 
  Country: None (occurrence: None)
  Receive Date: 20090619
  Receipt Date: 20081024
  Transmission Date: 20091009
  Serious: No
  Sender: FDA-Public Use
  Company Number: US-ASTRAZENECA-2008UW23784

PATIENT
  Sex: Male
  Weight: 86.2 kg

DRUGS (5)
  1. ATACAND HCT [Suspect]
     Indication: HYPERTENSION
     Dosage: 32/12.5 MG
     Route: 048
  2. ATACAND HCT [Suspect]
     Dosage: 16/12.5 MG
     Route: 048
     Dates: start: 20061207
  3. LODINE [Concomitant]
     Dosage: PRN
  4. LOVAZA [Concomitant]
  5. IBUPROFEN [Concomitant]
     Dosage: PRN

REACTIONS (3)
  - GENITAL RASH [None]
  - PRURITUS GENITAL [None]
  - SEXUAL DYSFUNCTION [None]
